FAERS Safety Report 11326168 (Version 3)
Quarter: 2015Q4

REPORT INFORMATION
  Report Type: Report from Study
  Country: DE (occurrence: DE)
  Receive Date: 20150731
  Receipt Date: 20151008
  Transmission Date: 20160304
  Serious: Yes (Other)
  Sender: FDA-Public Use
  Company Number: PHHY2015DE090202

PATIENT
  Age: 42 Year
  Sex: Female

DRUGS (2)
  1. GILENYA [Suspect]
     Active Substance: FINGOLIMOD HYDROCHLORIDE
     Indication: MULTIPLE SCLEROSIS
     Dosage: 0.5 MG, QD
     Route: 048
     Dates: start: 20111017, end: 20150428
  2. DECORTIN [Concomitant]
     Active Substance: PREDNISONE
     Indication: MULTIPLE SCLEROSIS RELAPSE
     Dosage: 100 MG, UNK
     Route: 048
     Dates: start: 20120116, end: 20120121

REACTIONS (3)
  - Glioma [Unknown]
  - Ataxia [Unknown]
  - Diplopia [Unknown]

NARRATIVE: CASE EVENT DATE: 201504
